FAERS Safety Report 5748861-8 (Version None)
Quarter: 2008Q2

REPORT INFORMATION
  Report Type: 
  Country: None (occurrence: None)
  Receive Date: 20080522
  Receipt Date: 20080505
  Transmission Date: 20081010
  Serious: Yes (Hospitalization)
  Sender: FDA-Public Use
  Company Number: 2008AL003421

PATIENT
  Age: 56 Year
  Sex: Male
  Weight: 86.1834 kg

DRUGS (4)
  1. DIGOXIN [Suspect]
     Indication: CARDIAC HYPERTROPHY
     Dosage: 0.25 MG DAILY PO
     Route: 048
     Dates: start: 20030101
  2. LASIX [Concomitant]
  3. SPIRONOLACTONE [Concomitant]
  4. POTASSIUM SPARING DIURETIC [Concomitant]

REACTIONS (5)
  - CHEST PAIN [None]
  - FEELING COLD [None]
  - RASH [None]
  - TREMOR [None]
  - WITHDRAWAL SYNDROME [None]
